FAERS Safety Report 12467863 (Version 3)
Quarter: 2016Q2

REPORT INFORMATION
  Report Type: Spontaneous
  Country: NL (occurrence: NL)
  Receive Date: 20160615
  Receipt Date: 20160622
  Transmission Date: 20160815
  Serious: Yes (Life-Threatening, Other)
  Sender: FDA-Public Use
  Company Number: NL-ASTRAZENECA-2016SE59898

PATIENT
  Age: 22024 Day
  Sex: Male

DRUGS (7)
  1. MONTELUKAST [Concomitant]
     Active Substance: MONTELUKAST SODIUM
     Route: 048
     Dates: start: 201605
  2. FOSTER [Concomitant]
     Active Substance: BECLOMETHASONE\FORMOTEROL
     Route: 055
     Dates: start: 201605
  3. IPRATROPIUM [Concomitant]
     Active Substance: IPRATROPIUM
     Dosage: 40UG DF
     Route: 055
     Dates: start: 201605
  4. ATORVASTATINE [Concomitant]
     Active Substance: ATORVASTATIN
     Route: 048
     Dates: start: 2014
  5. FORXIGA [Suspect]
     Active Substance: DAPAGLIFLOZIN
     Indication: TYPE 2 DIABETES MELLITUS
     Route: 048
     Dates: start: 2014, end: 20160528
  6. MODALIM [Concomitant]
     Active Substance: CIPROFIBRATE
     Route: 048
     Dates: start: 2014
  7. NOVORAPID [Concomitant]
     Active Substance: INSULIN ASPART
     Dosage: 100E/ML PEN 3ML
     Route: 058

REACTIONS (2)
  - Diabetic ketoacidosis [Recovered/Resolved]
  - Starvation [Unknown]

NARRATIVE: CASE EVENT DATE: 20160527
